FAERS Safety Report 10164935 (Version 2)
Quarter: 2014Q2

REPORT INFORMATION
  Report Type: Spontaneous
  Country: US (occurrence: US)
  Receive Date: 20140510
  Receipt Date: 20140510
  Transmission Date: 20141212
  Serious: No
  Sender: FDA-Public Use
  Company Number: US-BRISTOL-MYERS SQUIBB COMPANY-19629120

PATIENT
  Age: 58 Year
  Sex: Female

DRUGS (3)
  1. BYDUREON [Suspect]
     Indication: TYPE 2 DIABETES MELLITUS
     Route: 058
     Dates: start: 20131012
  2. CARDIZEM [Concomitant]
     Route: 048
  3. CRESTOR [Concomitant]
     Route: 048

REACTIONS (2)
  - Injection site haemorrhage [Recovered/Resolved]
  - Blood glucose increased [Unknown]
